FAERS Safety Report 4701524-X (Version None)
Quarter: 2005Q2

REPORT INFORMATION
  Report Type: 
  Country: None (occurrence: None)
  Receive Date: 20050628
  Receipt Date: 20050617
  Transmission Date: 20051028
  Serious: Yes (Hospitalization)
  Sender: FDA-Public Use
  Company Number: US-KINGPHARMUSA00001-K200500851

PATIENT
  Age: 33 Year
  Sex: Male

DRUGS (3)
  1. ALTACE [Suspect]
     Dosage: 1.25 MG, QD
     Route: 048
  2. IMUREL [Suspect]
     Dosage: 100 MG, QD
     Route: 048
  3. NEORAL [Suspect]
     Dosage: 125 MG, QD
     Route: 048

REACTIONS (4)
  - BLOOD CREATININE INCREASED [None]
  - COMPLICATIONS OF TRANSPLANTED KIDNEY [None]
  - NEPHROPATHY [None]
  - RENAL DISORDER [None]
